FAERS Safety Report 9486347 (Version 2)
Quarter: 2013Q3

REPORT INFORMATION
  Report Type: Report from Study
  Country: US (occurrence: US)
  Receive Date: 20130829
  Receipt Date: 20130903
  Transmission Date: 20140515
  Serious: Yes (Death, Hospitalization, Other)
  Sender: FDA-Public Use
  Company Number: US-ASTELLAS-2013US008960

PATIENT
  Age: 76 Year
  Sex: Male
  Weight: 46 kg

DRUGS (1)
  1. ERLOTINIB TABLET [Suspect]
     Indication: ACUTE MYELOID LEUKAEMIA
     Dosage: 150 MG, UID/QD
     Route: 048
     Dates: start: 20130809

REACTIONS (11)
  - Off label use [Unknown]
  - Neutropenia [Unknown]
  - Thrombocytopenia [Unknown]
  - Anaemia [Unknown]
  - Fatigue [Unknown]
  - Liver function test abnormal [Unknown]
  - Renal failure [Unknown]
  - Fall [Unknown]
  - Confusional state [Unknown]
  - Bone pain [Unknown]
  - Sepsis [Fatal]
